FAERS Safety Report 7515334-1 (Version None)
Quarter: 2011Q2

REPORT INFORMATION
  Report Type: 
  Country: None (occurrence: None)
  Receive Date: 20110601
  Receipt Date: 20100624
  Transmission Date: 20111010
  Serious: Yes (Other)
  Sender: FDA-Public Use
  Company Number: US-PFIZER INC-2010079852

PATIENT
  Sex: Male
  Weight: 77.098 kg

DRUGS (11)
  1. FORMOTEROL [Concomitant]
     Indication: ASTHMA
     Dosage: UNK, 2X/DAY
  2. ALBUTEROL SULFATE AUTOHALER [Concomitant]
     Indication: ASTHMA
     Dosage: 2 PUFFS, AS NEEDED
  3. ASCORBIC ACID [Concomitant]
     Indication: PNEUMONIA
     Dosage: 500 MG, 2X/DAY
  4. ACETYLSALICYLIC ACID [Concomitant]
     Dosage: 81 MG, DAILY
  5. MOMETASONE [Concomitant]
     Indication: EMPHYSEMA
  6. CHANTIX [Suspect]
     Indication: SMOKING CESSATION THERAPY
     Dosage: 0.5 MG, UNK
     Dates: start: 20100601, end: 20100601
  7. MOMETASONE [Concomitant]
     Indication: ASTHMA
     Dosage: 2 PUFFS, 2X/DAY
  8. CHANTIX [Suspect]
     Dosage: 0.5 MG, 1X/DAY
     Route: 048
     Dates: start: 20100601, end: 20100601
  9. FORMOTEROL [Concomitant]
     Indication: EMPHYSEMA
  10. ALBUTEROL SULFATE AUTOHALER [Concomitant]
     Indication: EMPHYSEMA
  11. PRAVASTATIN [Concomitant]
     Dosage: 20 MG, 1X/DAY

REACTIONS (1)
  - HEART RATE INCREASED [None]
